FAERS Safety Report 11733804 (Version 1)
Quarter: 2015Q4

REPORT INFORMATION
  Report Type: Spontaneous
  Country: US (occurrence: US)
  Receive Date: 20151110
  Receipt Date: 20151110
  Transmission Date: 20160304
  Serious: No
  Sender: FDA-Public Use
  Company Number: US-ELI_LILLY_AND_COMPANY-US201205008451

PATIENT
  Sex: Female

DRUGS (1)
  1. FORTEO [Suspect]
     Active Substance: TERIPARATIDE

REACTIONS (5)
  - Limb injury [Unknown]
  - Fall [Unknown]
  - Clavicle fracture [Unknown]
  - Balance disorder [Unknown]
  - Weight increased [Unknown]

NARRATIVE: CASE EVENT DATE: 201204
